FAERS Safety Report 6248836-9 (Version None)
Quarter: 2009Q2

REPORT INFORMATION
  Report Type: 
  Country: None (occurrence: None)
  Receive Date: 20090629
  Receipt Date: 20090627
  Transmission Date: 20091009
  Serious: Yes (Other)
  Sender: FDA-Public Use
  Company Number: US-PFIZER INC-2009169572

PATIENT

DRUGS (2)
  1. GEODON [Suspect]
  2. SEROQUEL [Suspect]

REACTIONS (2)
  - DRUG INTERACTION [None]
  - ILEUS [None]
